FAERS Safety Report 4719374-7 (Version None)
Quarter: 2005Q3

REPORT INFORMATION
  Report Type: 
  Country: None (occurrence: None)
  Receive Date: 20050721
  Receipt Date: 20050712
  Transmission Date: 20060218
  Serious: Yes (Death)
  Sender: FDA-Public Use
  Company Number: US-JNJFOC-20050600579

PATIENT
  Sex: Female
  Weight: 49.44 kg

DRUGS (12)
  1. REMICADE [Suspect]
     Indication: CROHN'S DISEASE
     Route: 042
  2. 5-ASA [Concomitant]
     Indication: CROHN'S DISEASE
  3. AZATHIOPRINE [Concomitant]
     Indication: CROHN'S DISEASE
  4. PREDNISONE [Concomitant]
  5. BENTYL [Concomitant]
     Indication: CROHN'S DISEASE
  6. PREVACID [Concomitant]
  7. DILANTIN [Concomitant]
  8. LISINOPRIL [Concomitant]
     Indication: HYPERTENSION
  9. LORATADINE [Concomitant]
     Indication: ANXIETY
     Dosage: PM
  10. VALIUM [Concomitant]
     Indication: ANXIETY
     Dosage: PM
  11. COMBIVENT [Concomitant]
  12. COMBIVENT [Concomitant]

REACTIONS (3)
  - DEATH [None]
  - DYSPNOEA [None]
  - HOSPITALISATION [None]
